FAERS Safety Report 14548323 (Version 1)
Quarter: 2018Q1

REPORT INFORMATION
  Report Type: Spontaneous
  Country: IT (occurrence: IT)
  Receive Date: 20180219
  Receipt Date: 20180219
  Transmission Date: 20180509
  Serious: Yes (Other)
  Sender: FDA-Public Use
  Company Number: IT-ELI_LILLY_AND_COMPANY-IT201802004236

PATIENT
  Age: 75 Year
  Weight: 150 kg

DRUGS (5)
  1. TROPISETRON HYDROCHLORIDE [Concomitant]
     Active Substance: TROPISETRON HYDROCHLORIDE
     Indication: PROPHYLAXIS OF NAUSEA AND VOMITING
     Dosage: 5 MG, UNK
     Route: 042
     Dates: start: 20170210, end: 20170323
  2. ZANTAC [Concomitant]
     Active Substance: RANITIDINE HYDROCHLORIDE
     Indication: PROPHYLAXIS OF NAUSEA AND VOMITING
     Dosage: 50 MG, UNK
     Dates: start: 20170210, end: 20170323
  3. GEMCITABINE HYDROCHLORIDE. [Suspect]
     Active Substance: GEMCITABINE HYDROCHLORIDE
     Indication: PANCREATIC CARCINOMA
     Dosage: 1 G, CYCLICAL
     Route: 042
     Dates: start: 20170210, end: 20170323
  4. ABRAXANE [Suspect]
     Active Substance: PACLITAXEL
     Indication: PANCREATIC CARCINOMA
     Dosage: 120 MG, CYCLICAL
     Route: 042
     Dates: start: 20170210, end: 20170323
  5. SOLDESAM [Concomitant]
     Active Substance: DEXAMETHASONE
     Indication: INFLAMMATION
     Dosage: 8 MG, UNK
     Route: 042
     Dates: start: 20170210, end: 20170323

REACTIONS (3)
  - Off label use [Unknown]
  - Hypertransaminasaemia [Unknown]
  - Thrombocytopenia [Unknown]

NARRATIVE: CASE EVENT DATE: 20170323
